FAERS Safety Report 9443296 (Version 1)
Quarter: 2013Q3

REPORT INFORMATION
  Report Type: Spontaneous
  Country: US (occurrence: US)
  Receive Date: 20130806
  Receipt Date: 20130806
  Transmission Date: 20140515
  Serious: Yes (Other)
  Sender: FDA-Public Use
  Company Number: US-GLAXOSMITHKLINE-A1035431A

PATIENT
  Age: 65 Year
  Sex: Male

DRUGS (12)
  1. ADVAIR [Suspect]
     Indication: CHRONIC OBSTRUCTIVE PULMONARY DISEASE
     Dosage: 1PUFF TWICE PER DAY
     Route: 055
     Dates: start: 2003
  2. ASPIRIN [Concomitant]
  3. FLUOXETINE [Concomitant]
  4. ENALAPRIL [Concomitant]
  5. LOVASTATIN [Concomitant]
  6. METOPROLOL [Concomitant]
  7. FUROSEMIDE [Concomitant]
  8. METFORMIN [Concomitant]
  9. INDOMETHACIN [Concomitant]
  10. HYDROCODONE [Concomitant]
  11. SPIRIVA [Concomitant]
  12. PROAIR HFA [Concomitant]

REACTIONS (6)
  - Throat cancer [Unknown]
  - Choking [Unknown]
  - Paranasal sinus hypersecretion [Unknown]
  - Throat irritation [Unknown]
  - Dysphonia [Unknown]
  - Speech disorder [Unknown]
